FAERS Safety Report 20685231 (Version 2)
Quarter: 2022Q2

REPORT INFORMATION
  Report Type: Spontaneous
  Country: DE (occurrence: DE)
  Receive Date: 20220407
  Receipt Date: 20220509
  Transmission Date: 20220721
  Serious: Yes (Other)
  Sender: FDA-Public Use
  Company Number: DE-BAUSCH-BL-2022-008553

PATIENT
  Age: 88 Year
  Sex: Male

DRUGS (2)
  1. ZYCLARA [Suspect]
     Active Substance: IMIQUIMOD
     Indication: Actinic keratosis
     Route: 065
  2. ZYCLARA [Suspect]
     Active Substance: IMIQUIMOD
     Indication: Basal cell carcinoma

REACTIONS (3)
  - Basal cell carcinoma [Unknown]
  - Skin disorder [Recovered/Resolved]
  - Fungal infection [Unknown]
